FAERS Safety Report 9142290 (Version 1)
Quarter: 2013Q1

REPORT INFORMATION
  Report Type: Spontaneous
  Country: DE (occurrence: DE)
  Receive Date: 20130305
  Receipt Date: 20130305
  Transmission Date: 20140127
  Serious: Yes (Other)
  Sender: FDA-Public Use
  Company Number: DE-MYLANLABS-2013S1004036

PATIENT
  Age: 40 Year
  Sex: Female
  Weight: 80 kg

DRUGS (1)
  1. VENLAFAXIN [Suspect]
     Indication: DEPRESSION
     Dosage: 150 MG
     Route: 048
     Dates: start: 2007

REACTIONS (2)
  - Gastritis [Recovered/Resolved]
  - Impaired gastric emptying [Recovered/Resolved]
